FAERS Safety Report 4420045-5 (Version None)
Quarter: 2004Q3

REPORT INFORMATION
  Report Type: 
  Country: None (occurrence: None)
  Receive Date: 20040805
  Receipt Date: 20040805
  Transmission Date: 20050211
  Serious: Yes (Death)
  Sender: FDA-Public Use
  Company Number: None

PATIENT
  Age: 71 Year
  Sex: Female

DRUGS (2)
  1. PACERONE [Suspect]
     Indication: ATRIAL FIBRILLATION
     Dates: start: 20020907, end: 20030415
  2. PACERONE [Suspect]
     Indication: ATRIAL FIBRILLATION
     Dates: start: 20020907, end: 20030415

REACTIONS (1)
  - ACUTE RESPIRATORY DISTRESS SYNDROME [None]
